FAERS Safety Report 6262867-4 (Version None)
Quarter: 2009Q3

REPORT INFORMATION
  Report Type: 
  Country: None (occurrence: None)
  Receive Date: 20090709
  Receipt Date: 20090702
  Transmission Date: 20100115
  Serious: Yes (Death)
  Sender: FDA-Public Use
  Company Number: GB-AMGEN-US354455

PATIENT
  Age: 71 Year
  Sex: Male

DRUGS (2)
  1. ENBREL [Suspect]
     Indication: PSORIASIS
     Route: 058
     Dates: start: 20070701, end: 20080901
  2. RANITIDINE [Concomitant]
     Route: 048

REACTIONS (1)
  - MESOTHELIOMA MALIGNANT [None]
